FAERS Safety Report 15432165 (Version 1)
Quarter: 2018Q3

REPORT INFORMATION
  Report Type: Spontaneous
  Country: ES (occurrence: ES)
  Receive Date: 20180926
  Receipt Date: 20180926
  Transmission Date: 20181010
  Serious: Yes (Hospitalization)
  Sender: FDA-Public Use
  Company Number: ES-NOVOPROD-622730

PATIENT
  Age: 71 Year
  Sex: Female

DRUGS (15)
  1. CANDESARTAN. [Concomitant]
     Active Substance: CANDESARTAN
     Dosage: 32 MG, QD (1?0?0)
     Route: 065
  2. OMEPRAZOLE. [Concomitant]
     Active Substance: OMEPRAZOLE
     Dosage: 20 MG, QD (1?0?0)
     Route: 065
  3. BISOPROLOL [Concomitant]
     Active Substance: BISOPROLOL
     Dosage: 2.5 MG (1?0?0)
     Route: 065
  4. SIMVASTATIN. [Concomitant]
     Active Substance: SIMVASTATIN
     Dosage: 40 MG, QD (0?0?1)
     Route: 065
  5. LANTUS [Concomitant]
     Active Substance: INSULIN GLARGINE
     Indication: TYPE 2 DIABETES MELLITUS
     Dosage: 52 IU, QD (26 UI?0?26UI)
     Route: 065
     Dates: end: 2016
  6. FENTANYL. [Concomitant]
     Active Substance: FENTANYL
     Dosage: 100MCH/72H
     Route: 062
  7. DOMPERIDONE [Concomitant]
     Active Substance: DOMPERIDONE
     Dosage: 10 MG, QD (0?1?0)
     Route: 065
  8. MIRTAZAPINE. [Concomitant]
     Active Substance: MIRTAZAPINE
     Dosage: 30 MG, QD (0?0?1)
     Route: 065
  9. IPATROP [Concomitant]
     Dosage: 3 INHALATIONS/8H (TID)
     Route: 065
  10. SERTRALINE [Concomitant]
     Active Substance: SERTRALINE HYDROCHLORIDE
     Dosage: 100 MG, QD (1?0?0)
     Route: 065
  11. LORAZEPAM. [Concomitant]
     Active Substance: LORAZEPAM
     Dosage: 1 MG IF NEEDS
     Route: 065
  12. NOVORAPID [Suspect]
     Active Substance: INSULIN ASPART
     Indication: TYPE 2 DIABETES MELLITUS
     Dosage: 26 IU, QD (8UI?10UI?8UI)
     Route: 065
     Dates: start: 2014, end: 2016
  13. AAS [Concomitant]
     Active Substance: ASPIRIN
     Dosage: 100 MG, QD (0?1?0)
     Route: 065
  14. NTG [Concomitant]
     Active Substance: NITROGLYCERIN
     Dosage: 10MMG (9?21.00)
     Route: 065
  15. NEORECORMON [Concomitant]
     Active Substance: ERYTHROPOIETIN
     Dosage: 4000UI EACH WEEK
     Route: 065

REACTIONS (2)
  - Glycosylated haemoglobin increased [Recovered/Resolved]
  - Cardiac failure [Recovered/Resolved]

NARRATIVE: CASE EVENT DATE: 2016
